FAERS Safety Report 9322508 (Version 1)
Quarter: 2013Q2

REPORT INFORMATION
  Report Type: Spontaneous
  Country: CH (occurrence: CH)
  Receive Date: 20130531
  Receipt Date: 20130531
  Transmission Date: 20140414
  Serious: Yes (Other)
  Sender: FDA-Public Use
  Company Number: CH-PFIZER INC-2013163587

PATIENT
  Age: 53 Year
  Sex: Male

DRUGS (18)
  1. SOLU-MEDROL [Suspect]
     Indication: NON-HODGKIN^S LYMPHOMA
     Dosage: 250 MG, 1X/DAY
     Route: 041
     Dates: start: 20130131, end: 20130202
  2. TEMESTA [Suspect]
     Dosage: AT 11PM
     Dates: start: 20130131, end: 20130131
  3. METHADONE [Interacting]
     Dosage: 10 MG, 2X/DAY
     Route: 048
  4. RITUXIMAB [Concomitant]
     Indication: NON-HODGKIN^S LYMPHOMA
     Dosage: 200 MG PER DAY
     Route: 041
     Dates: start: 20130201, end: 20130203
  5. ASPIRIN CARDIO [Concomitant]
     Dosage: 100 MG, 1X/DAY
  6. ZYLORIC [Concomitant]
     Dosage: 300 MG, 1X/DAY
     Dates: start: 20130130
  7. ESOMEPRAZOLE [Concomitant]
     Dosage: 40 MG, 1X/DAY
     Dates: start: 20130109
  8. INTELENCE [Concomitant]
     Dosage: 200 MG, 2X/DAY
  9. 3TC [Concomitant]
     Dosage: 150 MG, 2X/DAY
  10. ISENTRESS [Concomitant]
     Dosage: 400 MG, 2X/DAY
  11. PRAVASTATIN SODIUM [Concomitant]
     Dosage: 40 MG, 1X/DAY
  12. TRIATEC [Concomitant]
     Dosage: 2.5 MG, 1X/DAY
  13. BELOC [Concomitant]
     Dosage: 25 MG, 1X/DAY
  14. LEGALON [Concomitant]
     Dosage: 70 MG, 2X/DAY
  15. TAVEGYL [Concomitant]
     Dosage: 2 MG, 1X/DAY GIVEN BEFORE RITUXIMAB ADMINISTRATION
     Route: 042
  16. FUZEON [Concomitant]
     Dosage: 90 MG, 2X/DAY
     Route: 058
     Dates: start: 20130202
  17. PREDNISONE [Concomitant]
     Dosage: 70 MG, 1X/DAY
     Dates: start: 20130203
  18. DAFALGAN [Concomitant]
     Dosage: 1 G, 1X/DAY GIVEN BEFORE RITUXIMAB ADMINISTRATION

REACTIONS (3)
  - Drug withdrawal syndrome [Recovered/Resolved]
  - Drug interaction [Recovered/Resolved]
  - Drug ineffective [Unknown]
